FAERS Safety Report 4796505-4 (Version None)
Quarter: 2005Q4

REPORT INFORMATION
  Report Type: 
  Country: None (occurrence: None)
  Receive Date: 20051006
  Receipt Date: 20051006
  Transmission Date: 20060501
  Serious: No
  Sender: FDA-Public Use
  Company Number: None

PATIENT
  Sex: Male

DRUGS (12)
  1. HEPARIN [Suspect]
     Indication: ANTICOAGULANT THERAPY
     Dosage: IV DRIP (VARIOUS DOSES)
     Route: 041
     Dates: start: 20041217, end: 20041221
  2. HEPARIN [Suspect]
     Indication: ATRIAL FIBRILLATION
     Dosage: IV DRIP (VARIOUS DOSES)
     Route: 041
     Dates: start: 20041217, end: 20041221
  3. AMIODARONE [Concomitant]
  4. ASPIRIN [Concomitant]
  5. ATORVASTATIN [Concomitant]
  6. CLONAZEPAM [Concomitant]
  7. CLOPIDOGREL [Concomitant]
  8. ENALAPRIL [Concomitant]
  9. FUROSEMIDE [Concomitant]
  10. LANSOPRAZOLE [Concomitant]
  11. LORAZEPAM [Concomitant]
  12. METOPROLOL [Concomitant]

REACTIONS (1)
  - HEPARIN-INDUCED THROMBOCYTOPENIA [None]
